FAERS Safety Report 5451558-5 (Version None)
Quarter: 2007Q3

REPORT INFORMATION
  Report Type: 
  Country: None (occurrence: None)
  Receive Date: 20070913
  Receipt Date: 20070911
  Transmission Date: 20080115
  Serious: Yes (Other)
  Sender: FDA-Public Use
  Company Number: US-ASTRAZENECA-2007UW20947

PATIENT
  Age: 47 Year
  Sex: Male

DRUGS (8)
  1. CRESTOR [Suspect]
     Route: 048
     Dates: start: 20051109
  2. AVANDIA [Concomitant]
  3. BENICAR [Concomitant]
  4. IBUPROFEN [Concomitant]
  5. VIAGRA [Concomitant]
  6. ATARAX [Concomitant]
  7. IMITRE [Concomitant]
  8. ZOVIRAX [Concomitant]

REACTIONS (6)
  - ANOREXIA [None]
  - FATIGUE [None]
  - MALAISE [None]
  - MUSCULAR WEAKNESS [None]
  - MYALGIA [None]
  - RHABDOMYOLYSIS [None]
